FAERS Safety Report 8258922-X (Version None)
Quarter: 2012Q2

REPORT INFORMATION
  Report Type: 
  Country: None (occurrence: None)
  Receive Date: 20120404
  Receipt Date: 20120326
  Transmission Date: 20120825
  Serious: Yes (Other)
  Sender: FDA-Public Use
  Company Number: US-ELI_LILLY_AND_COMPANY-US201109007678

PATIENT
  Sex: Female

DRUGS (8)
  1. FORTEO [Suspect]
     Indication: OSTEOPOROSIS
     Dosage: 20 UG, QD
     Route: 065
  2. FORTEO [Suspect]
     Dosage: 20 UG, QD
     Route: 065
  3. FORTEO [Suspect]
     Dosage: 20 UG, QD
  4. FORTEO [Suspect]
     Dosage: 20 UG, QD
  5. FORTEO [Suspect]
     Dosage: 20 UG, QD
     Route: 065
  6. FORTEO [Suspect]
     Dosage: 20 UG, QD
     Route: 065
  7. ANTIDEPRESSANTS [Concomitant]
  8. ALLERGY MEDICATION [Concomitant]
     Dosage: UNK

REACTIONS (11)
  - GAIT DISTURBANCE [None]
  - MUSCLE SPASMS [None]
  - MYCOSIS FUNGOIDES [None]
  - URTICARIA [None]
  - PRURITUS [None]
  - HYPERSENSITIVITY [None]
  - ARTHROPOD BITE [None]
  - RASH [None]
  - TREMOR [None]
  - PAIN IN EXTREMITY [None]
  - FOOT FRACTURE [None]
